FAERS Safety Report 14245936 (Version 2)
Quarter: 2017Q4

REPORT INFORMATION
  Report Type: Spontaneous
  Country: US (occurrence: US)
  Receive Date: 20171204
  Receipt Date: 20171228
  Transmission Date: 20180321
  Serious: Yes (Other)
  Sender: FDA-Public Use
  Company Number: US-JNJFOC-20171126983

PATIENT
  Age: 36 Year
  Sex: Male
  Weight: 83.92 kg

DRUGS (5)
  1. BENGAY ULTRA STRENGTH PAIN RELIEVING REGULAR SIZE [Suspect]
     Active Substance: MENTHOL
     Indication: BACK PAIN
     Dosage: 10 YEARS NO
     Route: 061
  2. BENGAY ULTRA STRENGTH PAIN RELIEVING REGULAR SIZE [Suspect]
     Active Substance: MENTHOL
     Indication: BACK PAIN
     Route: 061
     Dates: start: 20171113, end: 20171113
  3. CEPHALEXIN                         /00145501/ [Concomitant]
     Active Substance: CEPHALEXIN
     Indication: HORDEOLUM
     Route: 065
     Dates: start: 20171104, end: 20171114
  4. CELTEX [Interacting]
     Active Substance: CEFOTAXIME SODIUM
     Indication: ANTIBIOTIC THERAPY
     Route: 065
     Dates: start: 20171114, end: 20171114
  5. CELTEX [Interacting]
     Active Substance: CEFOTAXIME SODIUM
     Indication: SKIN DISORDER
     Route: 065
     Dates: start: 20171114, end: 20171114

REACTIONS (3)
  - Hypersensitivity [Recovered/Resolved]
  - Loss of consciousness [Recovered/Resolved]
  - Drug interaction [Recovered/Resolved]

NARRATIVE: CASE EVENT DATE: 20171113
